FAERS Safety Report 10058245 (Version 2)
Quarter: 2014Q2

REPORT INFORMATION
  Report Type: Report from Study
  Country: CA (occurrence: CA)
  Receive Date: 20140404
  Receipt Date: 20140514
  Transmission Date: 20141212
  Serious: Yes (Hospitalization)
  Sender: FDA-Public Use
  Company Number: CA-JNJFOC-20140318301

PATIENT
  Age: 44 Year
  Sex: Male
  Weight: 78.5 kg

DRUGS (6)
  1. REMICADE [Suspect]
     Indication: COLITIS ULCERATIVE
     Route: 042
     Dates: start: 20130702
  2. FOLIC ACID [Concomitant]
     Route: 065
  3. VITAMIN D [Concomitant]
     Route: 065
  4. AZATHIOPRINE [Concomitant]
     Route: 065
  5. CALCIUM [Concomitant]
     Route: 065
  6. DEMEROL [Concomitant]
     Dosage: AS NEEDED
     Route: 065

REACTIONS (7)
  - Nausea [Recovering/Resolving]
  - Vomiting [Recovering/Resolving]
  - Diarrhoea [Recovering/Resolving]
  - Abdominal pain [Recovering/Resolving]
  - Dehydration [Recovering/Resolving]
  - Influenza [Recovering/Resolving]
  - Fatigue [Recovering/Resolving]
